FAERS Safety Report 7607425-1 (Version None)
Quarter: 2011Q3

REPORT INFORMATION
  Report Type: 
  Country: None (occurrence: None)
  Receive Date: 20110713
  Receipt Date: 20110705
  Transmission Date: 20111222
  Serious: Yes (Death, Other)
  Sender: FDA-Public Use
  Company Number: MX-SANOFI-AVENTIS-2011SA042821

PATIENT
  Age: 64 Year
  Sex: Female

DRUGS (3)
  1. INSULIN GLARGINE [Suspect]
     Indication: TYPE 2 DIABETES MELLITUS
     Dates: start: 20030101, end: 20100101
  2. INSULIN GLARGINE [Suspect]
     Dates: start: 20100101, end: 20101223
  3. ALL OTHER THERAPEUTIC PRODUCTS [Concomitant]

REACTIONS (4)
  - HYPERHIDROSIS [None]
  - CHEST PAIN [None]
  - HYPERGLYCAEMIA [None]
  - ASTHENIA [None]
